FAERS Safety Report 21455332 (Version 1)
Quarter: 2022Q4

REPORT INFORMATION
  Report Type: Report from Study
  Country: US (occurrence: US)
  Receive Date: 20221014
  Receipt Date: 20221014
  Transmission Date: 20230112
  Serious: No
  Sender: FDA-Public Use
  Company Number: US-ABBVIE-4144095

PATIENT
  Sex: Female

DRUGS (1)
  1. LUPRON DEPOT [Suspect]
     Active Substance: LEUPROLIDE ACETATE
     Indication: Hyperpituitarism
     Dosage: TREATMENT DISCONTINUED IN 2022.
     Route: 065
     Dates: start: 20220613

REACTIONS (2)
  - Arthralgia [Unknown]
  - Dermal cyst [Unknown]

NARRATIVE: CASE EVENT DATE: 20220101
